FAERS Safety Report 17654945 (Version 1)
Quarter: 2020Q2

REPORT INFORMATION
  Report Type: Spontaneous
  Country: US (occurrence: US)
  Receive Date: 20200409
  Receipt Date: 20200409
  Transmission Date: 20200713
  Serious: No
  Sender: FDA-Public Use
  Company Number: None

PATIENT
  Sex: Female

DRUGS (1)
  1. STELARA [Suspect]
     Active Substance: USTEKINUMAB
     Indication: PSORIATIC ARTHROPATHY
     Dosage: FREQUENCY: 45MG DAY 0, 45MG 4 WEEKS LATER, THEN 45MG Q12 WEEKS
     Route: 058
     Dates: start: 202003, end: 202004

REACTIONS (2)
  - Therapy cessation [None]
  - Adverse reaction [None]
